FAERS Safety Report 25081169 (Version 1)
Quarter: 2025Q1

REPORT INFORMATION
  Report Type: Other
  Country: FR (occurrence: FR)
  Receive Date: 20250315
  Receipt Date: 20250315
  Transmission Date: 20250409
  Serious: Yes (Hospitalization)
  Sender: AIRGAS
  Company Number: FR-ALSI-2025000051

PATIENT
  Age: 21 Year
  Sex: Male

DRUGS (1)
  1. NITROUS OXIDE [Suspect]
     Active Substance: NITROUS OXIDE
     Indication: Substance use

REACTIONS (1)
  - Cerebral venous thrombosis [Recovered/Resolved]
